FAERS Safety Report 21561637 (Version 2)
Quarter: 2022Q4

REPORT INFORMATION
  Report Type: Spontaneous
  Country: ES (occurrence: ES)
  Receive Date: 20221107
  Receipt Date: 20221126
  Transmission Date: 20230113
  Serious: Yes (Hospitalization)
  Sender: FDA-Public Use
  Company Number: ES-TEVA-2022-ES-2822683

PATIENT
  Sex: Female

DRUGS (2)
  1. ALPRAZOLAM [Suspect]
     Active Substance: ALPRAZOLAM
     Indication: Intentional overdose
     Dosage: INGESTED 6 TABLETS
     Route: 048
  2. CARBAMAZEPINE [Suspect]
     Active Substance: CARBAMAZEPINE
     Indication: Intentional overdose
     Route: 065

REACTIONS (8)
  - Coma [Recovered/Resolved]
  - Pupillary disorder [Unknown]
  - Psychomotor hyperactivity [Recovered/Resolved]
  - Altered state of consciousness [Recovered/Resolved]
  - Hypotonia [Unknown]
  - Hyperglycaemia [Unknown]
  - Toxicity to various agents [Recovered/Resolved]
  - Intentional overdose [Unknown]
